FAERS Safety Report 15329400 (Version 1)
Quarter: 2018Q3

REPORT INFORMATION
  Report Type: Spontaneous
  Country: DE (occurrence: DE)
  Receive Date: 20180829
  Receipt Date: 20180829
  Transmission Date: 20181010
  Serious: Yes (Congenital Anomaly, Other)
  Sender: FDA-Public Use
  Company Number: DE-TORRENT-00009636

PATIENT
  Sex: Male
  Weight: 5 kg

DRUGS (2)
  1. FEMIBION [Concomitant]
     Active Substance: VITAMINS
     Indication: PROPHYLAXIS OF NEURAL TUBE DEFECT
     Dosage: UNKNOWN
     Route: 064
  2. VENLAFAXINE [Suspect]
     Active Substance: VENLAFAXINE HYDROCHLORIDE
     Indication: DEPRESSION
     Dosage: 300 [MG/D ]/ DOSAGE REDUCTION TO 225MG/D FROM WEEK 37
     Route: 064
     Dates: start: 20170123, end: 20171020

REACTIONS (4)
  - Atrial septal defect [Not Recovered/Not Resolved]
  - Large for dates baby [Unknown]
  - Respiratory disorder neonatal [Recovered/Resolved]
  - Foetal exposure during pregnancy [Unknown]

NARRATIVE: CASE EVENT DATE: 20171020
